FAERS Safety Report 9657286 (Version 1)
Quarter: 2013Q4

REPORT INFORMATION
  Report Type: Spontaneous
  Country: US (occurrence: US)
  Receive Date: 20131030
  Receipt Date: 20131030
  Transmission Date: 20140711
  Serious: No
  Sender: FDA-Public Use
  Company Number: US-MALLINCKRODT-T201203866

PATIENT
  Sex: Female

DRUGS (1)
  1. FENTANYL CITRATE [Suspect]
     Indication: PRODUCT USED FOR UNKNOWN INDICATION
     Dosage: 800 UG UNK

REACTIONS (6)
  - Rash [Unknown]
  - Malaise [Unknown]
  - Nausea [Unknown]
  - Gastrointestinal disorder [Unknown]
  - Oral pain [Unknown]
  - Drug ineffective [Unknown]
